FAERS Safety Report 5286630-6 (Version None)
Quarter: 2007Q2

REPORT INFORMATION
  Report Type: 
  Country: None (occurrence: None)
  Receive Date: 20070404
  Receipt Date: 20070328
  Transmission Date: 20071010
  Serious: Yes (Other)
  Sender: FDA-Public Use
  Company Number: JP-JPN-A200701293

PATIENT
  Age: 15 Year
  Sex: Male

DRUGS (6)
  1. RELENZA [Suspect]
     Indication: INFLUENZA
     Dosage: 10MG TWICE PER DAY
     Route: 055
     Dates: start: 20070319
  2. CHINESE MEDICINE [Concomitant]
     Route: 048
  3. UNKNOWN DRUG [Concomitant]
     Route: 065
  4. HOKUNALIN [Concomitant]
     Dosage: 1G PER DAY
     Route: 065
  5. HUSCODE [Concomitant]
     Dosage: 6ML PER DAY
     Route: 048
  6. BROCIN [Concomitant]
     Dosage: 10ML PER DAY
     Route: 065

REACTIONS (1)
  - DEPRESSED LEVEL OF CONSCIOUSNESS [None]
